FAERS Safety Report 21186711 (Version 1)
Quarter: 2022Q3

REPORT INFORMATION
  Report Type: Spontaneous
  Country: ZA (occurrence: ZA)
  Receive Date: 20220808
  Receipt Date: 20220808
  Transmission Date: 20221026
  Serious: Yes (Other)
  Sender: FDA-Public Use
  Company Number: ZA-BAYER-2022A109366

PATIENT
  Age: 50 Year
  Sex: Female

DRUGS (1)
  1. MIRENA [Suspect]
     Active Substance: LEVONORGESTREL
     Dosage: 20?G/DAY
     Route: 015
     Dates: start: 2020, end: 2022

REACTIONS (1)
  - Intraductal proliferative breast lesion [None]

NARRATIVE: CASE EVENT DATE: 20210602
